FAERS Safety Report 7089373-1 (Version None)
Quarter: 2010Q4

REPORT INFORMATION
  Report Type: 
  Country: None (occurrence: None)
  Receive Date: 20101108
  Receipt Date: 20101103
  Transmission Date: 20110411
  Serious: Yes (Death)
  Sender: FDA-Public Use
  Company Number: DE-CELGENEUS-062-50794-10101396

PATIENT
  Age: 78 Year
  Sex: Male

DRUGS (1)
  1. VIDAZA [Suspect]
     Route: 050
     Dates: end: 20080508

REACTIONS (1)
  - DEATH [None]
